FAERS Safety Report 10060767 (Version 1)
Quarter: 2014Q2

REPORT INFORMATION
  Report Type: Report from Study
  Country: US (occurrence: US)
  Receive Date: 20140404
  Receipt Date: 20140404
  Transmission Date: 20141212
  Serious: Yes (Hospitalization)
  Sender: FDA-Public Use
  Company Number: US-ABBVIE-14P-163-1217852-00

PATIENT
  Age: 52 Year
  Sex: Female

DRUGS (5)
  1. HUMIRA [Suspect]
     Indication: RHEUMATOID ARTHRITIS
     Dates: start: 201301, end: 201307
  2. SAVELLA [Concomitant]
     Indication: FIBROMYALGIA
  3. TRAMADOL [Concomitant]
     Indication: FIBROMYALGIA
     Route: 048
  4. CYCLOBENZAPRINE [Concomitant]
     Indication: FIBROMYALGIA
     Dosage: AT BEDTIME
  5. SIMPONI [Concomitant]
     Indication: RHEUMATOID ARTHRITIS

REACTIONS (3)
  - Intervertebral disc protrusion [Recovered/Resolved]
  - Increased tendency to bruise [Unknown]
  - Liver disorder [Unknown]
